FAERS Safety Report 11281855 (Version 1)
Quarter: 2015Q3

REPORT INFORMATION
  Report Type: Report from Study
  Country: DE (occurrence: DE)
  Receive Date: 20150717
  Receipt Date: 20150717
  Transmission Date: 20151125
  Serious: Yes (Death, Life-Threatening, Hospitalization, Other)
  Sender: FDA-Public Use
  Company Number: DE-ASTRAZENECA-2012SE80044

PATIENT
  Age: 70 Year
  Sex: Male

DRUGS (14)
  1. SUFENTA [Concomitant]
     Active Substance: SUFENTANIL CITRATE
     Indication: BRAIN INJURY
     Route: 042
     Dates: start: 20120920, end: 20121013
  2. IRESSA [Suspect]
     Active Substance: GEFITINIB
     Indication: NON-SMALL CELL LUNG CANCER
     Route: 048
     Dates: start: 20120724, end: 20120928
  3. CISPLATIN. [Suspect]
     Active Substance: CISPLATIN
     Indication: NON-SMALL CELL LUNG CANCER
     Dosage: 75MG/M2 OVER 2 HOURS
     Route: 042
     Dates: start: 20120814, end: 20120814
  4. PEMETREXED [Suspect]
     Active Substance: PEMETREXED
     Indication: NON-SMALL CELL LUNG CANCER
     Dosage: 500MG/M2 OVER 10 MINUTES
     Route: 042
     Dates: start: 20120814, end: 20120814
  5. PEMETREXED [Suspect]
     Active Substance: PEMETREXED
     Indication: NON-SMALL CELL LUNG CANCER
     Dosage: 500MG/M2 OVER 10 MINUTES
     Route: 042
     Dates: start: 20120904, end: 20120904
  6. CISPLATIN. [Suspect]
     Active Substance: CISPLATIN
     Indication: NON-SMALL CELL LUNG CANCER
     Dosage: 75MG/M2 OVER 2 HOURS
     Route: 042
     Dates: start: 20120904, end: 20120904
  7. CISPLATIN. [Suspect]
     Active Substance: CISPLATIN
     Indication: NON-SMALL CELL LUNG CANCER
     Dosage: 75MG/M2 OVER 2 HOURS
     Route: 042
     Dates: start: 20120724, end: 20120724
  8. QUERTO (CARVADIOL) [Concomitant]
     Indication: HYPERTENSION
     Route: 048
     Dates: start: 20100701
  9. RINGERSOLUTION [Concomitant]
     Indication: BLOOD CREATININE INCREASED
     Dosage: STOPPED ON 28-DEC-2012
     Route: 042
     Dates: start: 20120927
  10. PEMETREXED [Suspect]
     Active Substance: PEMETREXED
     Indication: NON-SMALL CELL LUNG CANCER
     Dosage: 500MG/M2 OVER 10 MINUTES
     Route: 042
     Dates: start: 20120724, end: 20120724
  11. RINGERSOLUTION [Concomitant]
     Indication: BLOOD CREATININE INCREASED
     Route: 042
     Dates: start: 20120925, end: 20120928
  12. FOLSAN [Concomitant]
     Active Substance: FOLIC ACID
     Indication: PROPHYLAXIS
     Route: 048
     Dates: start: 20120717
  13. AMLOPEDIN [Concomitant]
     Indication: HYPERTENSION
     Route: 048
     Dates: start: 20120701
  14. RINGERSOLUTION [Concomitant]
     Indication: BLOOD CREATININE INCREASED
     Route: 042
     Dates: start: 20120925, end: 20120926

REACTIONS (1)
  - Pneumonia [Fatal]

NARRATIVE: CASE EVENT DATE: 20120928
